FAERS Safety Report 24109058 (Version 1)
Quarter: 2024Q3

REPORT INFORMATION
  Report Type: Spontaneous
  Country: FR (occurrence: FR)
  Receive Date: 20240718
  Receipt Date: 20240718
  Transmission Date: 20241016
  Serious: Yes (Other)
  Sender: AUROBINDO
  Company Number: FR-AFSSAPS-RN2024000757

PATIENT
  Age: 26 Year
  Sex: Female
  Weight: 48 kg

DRUGS (1)
  1. QUETIAPINE FUMARATE [Suspect]
     Active Substance: QUETIAPINE FUMARATE
     Indication: Bipolar disorder
     Dosage: 150 MILLIGRAM, ONCE A DAY (1 MATIN ET 2 SOIR 150 MG TOTAL)
     Route: 048
     Dates: start: 20240529

REACTIONS (5)
  - Speech disorder [Recovered/Resolved]
  - Headache [Recovered/Resolved]
  - Cervical radiculopathy [Recovered/Resolved]
  - Menstrual disorder [Recovering/Resolving]
  - Nausea [Recovered/Resolved]

NARRATIVE: CASE EVENT DATE: 20240530
